FAERS Safety Report 20945228 (Version 1)
Quarter: 2022Q2

REPORT INFORMATION
  Report Type: Spontaneous
  Country: FR (occurrence: FR)
  Receive Date: 20220610
  Receipt Date: 20220610
  Transmission Date: 20220721
  Serious: Yes (Hospitalization)
  Sender: FDA-Public Use
  Company Number: None

PATIENT
  Age: 51 Year
  Sex: Male
  Weight: 83 kg

DRUGS (8)
  1. TRAMADOL [Suspect]
     Active Substance: TRAMADOL
     Indication: Pain
     Dosage: THERAPY START DATE  : ASKU, UNIT DOSE: 150 MG, FREQUENCY : 1 DAYS
     Route: 048
     Dates: end: 202205
  2. PREGABALIN [Suspect]
     Active Substance: PREGABALIN
     Indication: Neuralgia
     Dosage: UNIT DOSE: 150 MG, FREQUENCY : 1 DAYS, THERAPY START DATE  : ASKU
     Route: 048
     Dates: end: 202205
  3. TASIGNA [Suspect]
     Active Substance: NILOTINIB
     Indication: Chronic myeloid leukaemia
     Dosage: TASIGNA 150 MG, UNIT DOSE: 600 MG, FREQUENCY : 1 DAYS
     Route: 048
     Dates: start: 20200723, end: 20220504
  4. NOVORAPID [Concomitant]
     Active Substance: INSULIN ASPART
     Dosage: THERAPY START DATE  : ASKU, UNIT DOSE: 8 IU, FREQUENCY : 1 DAYS
     Route: 058
  5. METFORMIN HYDROCHLORIDE [Concomitant]
     Active Substance: METFORMIN HYDROCHLORIDE
     Dosage: THERAPY START DATE  : ASKU, UNIT DOSE: 1.5 MG, FREQUENCY : 1 DAYS
     Route: 048
  6. CREON [Concomitant]
     Active Substance: PANCRELIPASE AMYLASE\PANCRELIPASE LIPASE\PANCRELIPASE PROTEASE
     Dosage: CREON 25,000 U, THERAPY START DATE  : ASKU, UNIT DOSE: 150000 IU, FREQUENCY : 1 DAYS
     Route: 048
  7. LANSOPRAZOLE [Concomitant]
     Active Substance: LANSOPRAZOLE
     Dosage: UNIT DOSE: 30 MG, FREQUENCY : 1 DAYS, THERAPY START DATE  : ASKU
     Route: 048
  8. TOUJEO [Concomitant]
     Active Substance: INSULIN GLARGINE
     Dosage: THERAPY START DATE  : ASKU, UNIT DOSE: 14 IU, FREQUENCY : 1 DAYS
     Route: 058

REACTIONS (1)
  - Pancreatitis acute [Recovering/Resolving]

NARRATIVE: CASE EVENT DATE: 20220426
